FAERS Safety Report 24104550 (Version 1)
Quarter: 2024Q3

REPORT INFORMATION
  Report Type: Spontaneous
  Country: SE (occurrence: SE)
  Receive Date: 20240717
  Receipt Date: 20240717
  Transmission Date: 20241016
  Serious: Yes (Other)
  Sender: MYLAN
  Company Number: None

PATIENT
  Age: 55 Year
  Sex: Female

DRUGS (1)
  1. MONTELUKAST [Suspect]
     Active Substance: MONTELUKAST SODIUM
     Indication: Product used for unknown indication
     Dosage: UNK
     Route: 065
     Dates: start: 201912, end: 202405

REACTIONS (4)
  - Panic attack [Recovered/Resolved]
  - Major depression [Recovered/Resolved]
  - Obsessive thoughts [Recovered/Resolved]
  - Suicidal ideation [Recovered/Resolved]
